FAERS Safety Report 4833173-7 (Version None)
Quarter: 2005Q4

REPORT INFORMATION
  Report Type: 
  Country: None (occurrence: None)
  Receive Date: 20051117
  Receipt Date: 20051107
  Transmission Date: 20060501
  Serious: Yes (Death, Other)
  Sender: FDA-Public Use
  Company Number: 2005135105

PATIENT
  Age: 77 Year
  Sex: Male

DRUGS (1)
  1. NEURONTIN [Suspect]
     Indication: TRIGEMINAL NEURALGIA
     Dates: end: 20010501

REACTIONS (4)
  - COMPLETED SUICIDE [None]
  - DRUG INEFFECTIVE [None]
  - FACE INJURY [None]
  - GUN SHOT WOUND [None]
